FAERS Safety Report 9439810 (Version 1)
Quarter: 2013Q3

REPORT INFORMATION
  Report Type: Spontaneous
  Country: US (occurrence: US)
  Receive Date: 20130805
  Receipt Date: 20130805
  Transmission Date: 20140515
  Serious: No
  Sender: FDA-Public Use
  Company Number: US-PFIZER INC-2013222409

PATIENT
  Age: 66 Year
  Sex: Male

DRUGS (1)
  1. INLYTA [Suspect]
     Indication: RENAL CANCER
     Dosage: 5 MG, TWICE DAILY
     Dates: start: 20130702

REACTIONS (3)
  - Abdominal pain upper [Unknown]
  - Dysphonia [Unknown]
  - Muscle spasms [Unknown]
